FAERS Safety Report 17009899 (Version 1)
Quarter: 2019Q4

REPORT INFORMATION
  Report Type: Spontaneous
  Country: US (occurrence: US)
  Receive Date: 20191108
  Receipt Date: 20191108
  Transmission Date: 20200122
  Serious: Yes (Other)
  Sender: FDA-Public Use
  Company Number: US-BAUSCH-BL-2019-016852

PATIENT

DRUGS (4)
  1. BUPROPION HYDROCHLORIDE. [Suspect]
     Active Substance: BUPROPION HYDROCHLORIDE
     Indication: DEPRESSION
     Dosage: ON HIGH DOSAGE FOR 5 YEARS
     Route: 065
  2. WELLBUTRIN XL [Suspect]
     Active Substance: BUPROPION HYDROCHLORIDE
     Indication: DEPRESSION
     Dosage: ON A HIGH DOSAGE FOR 5 YEARS
     Route: 065
  3. WELLBUTRIN XL [Suspect]
     Active Substance: BUPROPION HYDROCHLORIDE
     Dosage: RESTARTED
     Route: 065
     Dates: start: 2014, end: 2014
  4. BUPROPION HYDROCHLORIDE. [Suspect]
     Active Substance: BUPROPION HYDROCHLORIDE
     Dosage: RESTARTED
     Route: 065
     Dates: start: 2014, end: 2014

REACTIONS (6)
  - Therapeutic product effect incomplete [Unknown]
  - Seizure [Unknown]
  - Tinnitus [Not Recovered/Not Resolved]
  - Confusional state [Unknown]
  - Feeling abnormal [Unknown]
  - Emotional poverty [Unknown]

NARRATIVE: CASE EVENT DATE: 2014
